FAERS Safety Report 19519832 (Version 6)
Quarter: 2024Q4

REPORT INFORMATION
  Report Type: Spontaneous
  Country: US (occurrence: US)
  Receive Date: 20210712
  Receipt Date: 20241104
  Transmission Date: 20250115
  Serious: Yes (Death, Other)
  Sender: PFIZER
  Company Number: US-PFIZER INC-2021800999

PATIENT
  Age: 66 Year
  Sex: Female

DRUGS (1)
  1. IBRANCE [Suspect]
     Active Substance: PALBOCICLIB
     Indication: Breast cancer metastatic
     Dosage: 7 DAYS OFF
     Dates: start: 20210629

REACTIONS (4)
  - Death [Fatal]
  - Product dose omission issue [Unknown]
  - Neoplasm progression [Unknown]
  - COVID-19 [Unknown]
